FAERS Safety Report 4808938-8 (Version None)
Quarter: 2005Q4

REPORT INFORMATION
  Report Type: 
  Country: None (occurrence: None)
  Receive Date: 20051025
  Receipt Date: 20051014
  Transmission Date: 20060501
  Serious: Yes (Other)
  Sender: FDA-Public Use
  Company Number: KR-JNJFOC-20050806904

PATIENT
  Sex: Female
  Weight: 51 kg

DRUGS (10)
  1. REMINYL [Suspect]
     Dosage: REPLACED WITH EXTENDED-RELEASE CAPSULE
     Route: 048
  2. REMINYL [Suspect]
     Dosage: RESTARTED; THEN INCREASED TO 16MG/DAY
     Route: 048
  3. REMINYL [Suspect]
     Route: 048
  4. REMINYL [Suspect]
     Indication: DEMENTIA ALZHEIMER'S TYPE
     Route: 048
  5. SEROQUEL [Concomitant]
     Dosage: RESTARTED
     Route: 048
  6. SEROQUEL [Concomitant]
     Indication: ANXIETY
     Route: 048
  7. ALPRAZOLAM [Concomitant]
     Dosage: RESTARTED
     Route: 048
  8. ALPRAZOLAM [Concomitant]
     Indication: SEDATION
     Dosage: TEMPORARY STOP
     Route: 048
  9. TANAMIN [Concomitant]
     Dosage: RESTARTED
     Route: 048
  10. TANAMIN [Concomitant]
     Indication: PROPHYLAXIS
     Dosage: TEMPORARY STOP
     Route: 048

REACTIONS (2)
  - ALANINE AMINOTRANSFERASE INCREASED [None]
  - ASPARTATE AMINOTRANSFERASE INCREASED [None]
